FAERS Safety Report 4972477-4 (Version None)
Quarter: 2006Q2

REPORT INFORMATION
  Report Type: 
  Country: None (occurrence: None)
  Receive Date: 20060413
  Receipt Date: 20051020
  Transmission Date: 20061013
  Serious: Yes (Hospitalization, Disabling)
  Sender: FDA-Public Use
  Company Number: US-MERCK-0510USA08448

PATIENT
  Age: 76 Year
  Sex: Female
  Weight: 72 kg

DRUGS (26)
  1. VIOXX [Suspect]
     Indication: OSTEOARTHRITIS
     Route: 048
     Dates: start: 19991227, end: 20031114
  2. ASPIRIN [Concomitant]
     Route: 065
  3. MOBIC [Concomitant]
     Route: 065
  4. PLAVIX [Concomitant]
     Route: 065
  5. HYZAAR [Concomitant]
     Indication: HYPERTENSION
     Route: 065
  6. ALLEGRA [Concomitant]
     Indication: HYPERSENSITIVITY
     Route: 065
  7. ATENOLOL [Concomitant]
     Indication: HYPERTENSION
     Route: 065
  8. COZAAR [Concomitant]
     Indication: HYPERTENSION
     Route: 065
  9. CLONIDINE [Concomitant]
     Indication: HYPERTENSION
     Route: 065
  10. DILTIAZEM MALATE [Concomitant]
     Indication: HYPERTENSION
     Route: 065
  11. FUROSEMIDE [Concomitant]
     Indication: POLYURIA
     Route: 065
  12. LEVOXYL [Concomitant]
     Indication: HYPOTHYROIDISM
     Route: 065
  13. NORVASC [Concomitant]
     Indication: HYPERTENSION
     Route: 065
  14. PLENDIL [Concomitant]
     Indication: HYPERTENSION
     Route: 065
  15. PAXIL [Concomitant]
     Indication: ANXIETY
     Route: 065
  16. PREMARIN [Concomitant]
     Indication: BLOOD OESTROGEN
     Route: 065
  17. POTASSIUM CHLORIDE [Concomitant]
     Indication: MINERAL SUPPLEMENTATION
     Route: 065
  18. TRENTAL [Concomitant]
     Indication: PAIN IN EXTREMITY
     Route: 065
  19. ZYRTEC [Concomitant]
     Indication: HYPERSENSITIVITY
     Route: 065
  20. ELAVIL [Concomitant]
     Route: 065
  21. NEXIUM [Concomitant]
     Route: 065
  22. NASACORT [Concomitant]
     Route: 065
  23. ATIVAN [Concomitant]
     Route: 065
  24. TEQUIN [Concomitant]
     Route: 065
  25. PREDNISOLONE [Concomitant]
     Route: 065
  26. ACETAMINOPHEN AND HYDROCODONE BITARTRATE [Concomitant]
     Route: 065

REACTIONS (10)
  - ARRHYTHMIA [None]
  - CEREBROVASCULAR ACCIDENT [None]
  - CHEST PAIN [None]
  - FALL [None]
  - GASTROOESOPHAGEAL REFLUX DISEASE [None]
  - HYPERLIPIDAEMIA [None]
  - MYOCARDIAL INFARCTION [None]
  - PAIN IN EXTREMITY [None]
  - SHOULDER PAIN [None]
  - SINUS BRADYCARDIA [None]
